FAERS Safety Report 18565541 (Version 2)
Quarter: 2020Q4

REPORT INFORMATION
  Report Type: Spontaneous
  Country: US (occurrence: US)
  Receive Date: 20201201
  Receipt Date: 20201203
  Transmission Date: 20210114
  Serious: No
  Sender: FDA-Public Use
  Company Number: US-JNJFOC-20201119310

PATIENT
  Age: 31 Year
  Sex: Male
  Weight: 89.89 kg

DRUGS (1)
  1. MENS ROGAINE EXTRA STRENGTH [Suspect]
     Active Substance: MINOXIDIL
     Indication: ALOPECIA
     Dosage: DOSE- HALF A CAPFUL?THE PRODUCT LAST TIME USED ON 05/NOV/2020
     Route: 061
     Dates: start: 20201104

REACTIONS (2)
  - Application site rash [Recovered/Resolved]
  - Incorrect dose administered [Unknown]

NARRATIVE: CASE EVENT DATE: 20201104
